FAERS Safety Report 9556000 (Version 1)
Quarter: 2013Q3

REPORT INFORMATION
  Report Type: Spontaneous
  Country: IE (occurrence: None)
  Receive Date: 20130924
  Receipt Date: 20130924
  Transmission Date: 20140515
  Serious: Yes (Other)
  Sender: FDA-Public Use
  Company Number: B0924435A

PATIENT
  Age: 53 Year
  Sex: Female

DRUGS (3)
  1. AMANTADINE [Suspect]
     Indication: PARKINSON^S DISEASE
  2. REQUIP [Suspect]
     Indication: PARKINSON^S DISEASE
  3. STALEVO [Suspect]
     Indication: PARKINSON^S DISEASE

REACTIONS (5)
  - Impulse-control disorder [None]
  - Hypersexuality [None]
  - Compulsive shopping [None]
  - Feeling guilty [None]
  - Suicidal ideation [None]
